FAERS Safety Report 21309085 (Version 2)
Quarter: 2022Q3

REPORT INFORMATION
  Report Type: Spontaneous
  Country: FR (occurrence: FR)
  Receive Date: 20220908
  Receipt Date: 20220921
  Transmission Date: 20221027
  Serious: Yes (Life-Threatening, Hospitalization, Other)
  Sender: FDA-Public Use
  Company Number: FR-TEVA-2022-FR-2070340

PATIENT
  Age: 53 Year
  Sex: Male

DRUGS (20)
  1. DOXORUBICIN [Suspect]
     Active Substance: DOXORUBICIN
     Indication: Epstein-Barr virus associated lymphoproliferative disorder
     Dosage: EVERY 21 DAYS, 50 MG/M2
     Route: 065
     Dates: start: 2019
  2. DOXORUBICIN [Suspect]
     Active Substance: DOXORUBICIN
     Indication: Epstein-Barr virus associated lymphoma
  3. DOXORUBICIN [Suspect]
     Active Substance: DOXORUBICIN
     Indication: Diffuse large B-cell lymphoma
  4. PREDNISOLONE [Suspect]
     Active Substance: PREDNISOLONE
     Indication: Immunosuppressant drug therapy
     Dosage: LOW INITIAL DOSE
     Route: 065
  5. PREDNISOLONE [Suspect]
     Active Substance: PREDNISOLONE
     Dosage: 10 MILLIGRAM DAILY;
     Route: 065
  6. MYCOPHENOLATE MOFETIL [Suspect]
     Active Substance: MYCOPHENOLATE MOFETIL
     Indication: Immunosuppressant drug therapy
     Dosage: 2 GRAM DAILY;
     Route: 065
  7. EVEROLIMUS [Suspect]
     Active Substance: EVEROLIMUS
     Indication: Immunosuppressant drug therapy
     Dosage: 1.5 MILLIGRAM DAILY;
     Route: 065
     Dates: start: 2018
  8. VINCRISTINE [Suspect]
     Active Substance: VINCRISTINE
     Indication: Diffuse large B-cell lymphoma
     Dosage: EVERY 21 DAYS. 1.4 MG/M2
     Route: 065
     Dates: start: 2019
  9. VINCRISTINE [Suspect]
     Active Substance: VINCRISTINE
     Indication: Epstein-Barr virus associated lymphoma
  10. VINCRISTINE [Suspect]
     Active Substance: VINCRISTINE
     Indication: Epstein-Barr virus associated lymphoproliferative disorder
  11. CYCLOSPORINE [Suspect]
     Active Substance: CYCLOSPORINE
     Indication: Immunosuppressant drug therapy
     Dosage: 250 MILLIGRAM DAILY;
     Route: 065
  12. CYCLOSPORINE [Suspect]
     Active Substance: CYCLOSPORINE
     Dosage: 175 MILLIGRAM DAILY;
     Route: 065
  13. RITUXIMAB [Suspect]
     Active Substance: RITUXIMAB
     Indication: Epstein-Barr virus associated lymphoma
     Dosage: FOR 4 WEEKS. GIVEN AS MONOTHERAPY. LATER, GIVEN WITH R-CHOP, 375 MG/M2 ONCE PER WEEK
     Route: 065
     Dates: start: 2019
  14. RITUXIMAB [Suspect]
     Active Substance: RITUXIMAB
     Indication: Diffuse large B-cell lymphoma
  15. RITUXIMAB [Suspect]
     Active Substance: RITUXIMAB
     Indication: Epstein-Barr virus associated lymphoproliferative disorder
  16. CYCLOPHOSPHAMIDE [Suspect]
     Active Substance: CYCLOPHOSPHAMIDE
     Indication: Diffuse large B-cell lymphoma
     Dosage: EVERY 21 DAYS, 750 MG/M2
     Route: 065
     Dates: start: 2019
  17. CYCLOPHOSPHAMIDE [Suspect]
     Active Substance: CYCLOPHOSPHAMIDE
     Indication: Epstein-Barr virus associated lymphoma
  18. CYCLOPHOSPHAMIDE [Suspect]
     Active Substance: CYCLOPHOSPHAMIDE
     Indication: Epstein-Barr virus associated lymphoproliferative disorder
  19. THYMOGLOBULIN [Concomitant]
     Active Substance: LAPINE T-LYMPHOCYTE IMMUNE GLOBULIN
     Indication: Immunosuppressant drug therapy
     Dosage: 1 MG/KG DAILY; INDUCTION THERAPY
     Route: 065
  20. ATENOLOL [Concomitant]
     Active Substance: ATENOLOL
     Indication: Ventricular tachycardia
     Route: 065
     Dates: start: 2019

REACTIONS (14)
  - Arrhythmic storm [Unknown]
  - Renal failure [Unknown]
  - Epstein-Barr virus infection reactivation [Unknown]
  - Thrombocytopenia [Unknown]
  - Bone pain [Unknown]
  - Epstein-Barr virus associated lymphoma [Unknown]
  - Epstein-Barr virus associated lymphoproliferative disorder [Unknown]
  - Hypotension [Unknown]
  - Cyanosis [Unknown]
  - Urine output decreased [Unknown]
  - Haemodynamic instability [Unknown]
  - Diffuse large B-cell lymphoma [Unknown]
  - Toxicity to various agents [Unknown]
  - Treatment failure [Unknown]

NARRATIVE: CASE EVENT DATE: 20180101
